FAERS Safety Report 21481121 (Version 2)
Quarter: 2023Q4

REPORT INFORMATION
  Report Type: Spontaneous
  Country: US (occurrence: None)
  Receive Date: 20221019
  Receipt Date: 20231109
  Transmission Date: 20240109
  Serious: No
  Sender: FDA-Public Use
  Company Number: US-ROCHE-3145483

PATIENT
  Sex: Female

DRUGS (1)
  1. COTELLIC [Suspect]
     Active Substance: COBIMETINIB
     Indication: Malignant melanoma
     Route: 048
     Dates: start: 20211109

REACTIONS (5)
  - Myalgia [Unknown]
  - Erythema [Unknown]
  - Contusion [Unknown]
  - Mood altered [Unknown]
  - Memory impairment [Unknown]
